FAERS Safety Report 25542501 (Version 1)
Quarter: 2025Q3

REPORT INFORMATION
  Report Type: Spontaneous
  Country: EU (occurrence: EU)
  Receive Date: 20250711
  Receipt Date: 20250711
  Transmission Date: 20251021
  Serious: Yes (Life-Threatening)
  Sender: PHARMACOSMOS A/S
  Company Number: None

PATIENT
  Age: 80 Year
  Sex: Female
  Weight: 77 kg

DRUGS (13)
  1. FERRIC DERISOMALTOSE [Suspect]
     Active Substance: FERRIC DERISOMALTOSE
     Indication: Iron deficiency anaemia
     Dates: start: 20250402, end: 20250402
  2. PROPAFENONE HYDROCHLORIDE [Concomitant]
     Active Substance: PROPAFENONE HYDROCHLORIDE
     Dosage: THERAPY ONGOING; DRUG TAKEN CONTINUOUSLY
  3. METFORMIN HYDROCHLORIDE [Concomitant]
     Active Substance: METFORMIN HYDROCHLORIDE
     Dosage: THERAPY ONGOING; DRUG TAKEN CONTINUOUSLY
  4. LAPIXEN [Concomitant]
     Dosage: THERAPY ONGOING, DRUG TAKEN CONTINUOUSLY
  5. INDAPAMIDE [Concomitant]
     Active Substance: INDAPAMIDE
     Dosage: THERAPY ONGOING; DRUG TAKEN CONTINUOUSLY
  6. PRADAXA [Concomitant]
     Active Substance: DABIGATRAN ETEXILATE MESYLATE
     Dosage: THERAPY ONGOING; DRUG TAKEN CONTINUOUSLY
  7. ALLOPURINOL [Concomitant]
     Active Substance: ALLOPURINOL
     Dosage: THERAPY ONGOING; DRUG TAKEN CONTINUOUSLY
  8. UROFLOW [Concomitant]
     Dosage: THERAPY ONGOING; DRUG TAKEN CONTINUOUSLY
  9. RAMIPRIL [Concomitant]
     Active Substance: RAMIPRIL
     Dosage: THERAPY ONGOING; DRUG TAKEN CONTINUOUSLY
  10. QUETIAPINE FUMARATE [Concomitant]
     Active Substance: QUETIAPINE FUMARATE
     Dosage: THERAPY ONGOING; DRUG TAKEN CONTINUOUSLY
  11. TAROMENTIN 1000 MG + 200 MG [Concomitant]
     Indication: Respiratory tract infection
     Dates: start: 20250331, end: 20250405
  12. APIDRA SOLOSTAR [Concomitant]
     Active Substance: INSULIN GLULISINE
  13. INSULIN HUMAN [Concomitant]
     Active Substance: INSULIN HUMAN

REACTIONS (5)
  - Tachycardia [Recovered/Resolved]
  - Vomiting [Recovered/Resolved]
  - Hypotonia [Recovered/Resolved]
  - Pyrexia [Recovered/Resolved]
  - Oxygen saturation decreased [Recovered/Resolved]

NARRATIVE: CASE EVENT DATE: 20250402
